FAERS Safety Report 5736826-1 (Version None)
Quarter: 2008Q2

REPORT INFORMATION
  Report Type: 
  Country: None (occurrence: None)
  Receive Date: 20080508
  Receipt Date: 20080423
  Transmission Date: 20081010
  Serious: Yes (Death, Other)
  Sender: FDA-Public Use
  Company Number: 2008S1000139

PATIENT
  Age: 70 Year
  Sex: Male

DRUGS (5)
  1. CUBICIN [Suspect]
     Indication: PYREXIA
     Dosage: 6 MG/KG; Q24H; IV
     Route: 042
     Dates: start: 20080329, end: 20080402
  2. VONCON [Concomitant]
  3. TIGECYCLINE [Concomitant]
  4. MEROPENEM [Concomitant]
  5. GALBOFUDIN [Concomitant]

REACTIONS (5)
  - CONDITION AGGRAVATED [None]
  - HAEMODIALYSIS [None]
  - MULTI-ORGAN FAILURE [None]
  - RENAL FAILURE [None]
  - RHABDOMYOLYSIS [None]
